FAERS Safety Report 7018965-0 (Version None)
Quarter: 2010Q3

REPORT INFORMATION
  Report Type: 
  Country: None (occurrence: None)
  Receive Date: 20100928
  Receipt Date: 20100916
  Transmission Date: 20110219
  Serious: Yes (Disabling, Other)
  Sender: FDA-Public Use
  Company Number: US-WYE-H16195010

PATIENT
  Sex: Female
  Weight: 61.29 kg

DRUGS (8)
  1. PRISTIQ [Interacting]
     Indication: DEPRESSION
     Route: 048
     Dates: start: 20090731, end: 20100706
  2. PRISTIQ [Interacting]
     Dates: start: 20100707
  3. TRAMADOL [Concomitant]
     Indication: PROCEDURAL PAIN
     Dosage: UNKNOWN
     Dates: end: 20091001
  4. TRAMADOL [Concomitant]
     Dosage: UNKNOWN
     Dates: start: 20100521
  5. IBUPROFEN [Suspect]
     Dosage: UNKNOWN
  6. ADVIL LIQUI-GELS [Interacting]
     Indication: BACK PAIN
     Dosage: 200 MG, ONE OR TWO AS NEEDED
     Route: 048
     Dates: start: 20091001, end: 20100521
  7. ADVIL LIQUI-GELS [Interacting]
     Indication: PAIN IN EXTREMITY
  8. ADVIL LIQUI-GELS [Interacting]
     Indication: ARTHRALGIA

REACTIONS (13)
  - ACTIVITIES OF DAILY LIVING IMPAIRED [None]
  - ARTHRALGIA [None]
  - CONTUSION [None]
  - DRUG INTERACTION [None]
  - EYE HAEMORRHAGE [None]
  - GAIT DISTURBANCE [None]
  - HAEMARTHROSIS [None]
  - JOINT EFFUSION [None]
  - JOINT SWELLING [None]
  - MUSCLE STRAIN [None]
  - PHARYNGITIS [None]
  - POST PROCEDURAL HAEMATOMA [None]
  - WHITE BLOOD CELL COUNT DECREASED [None]
